FAERS Safety Report 4955101-6 (Version None)
Quarter: 2006Q1

REPORT INFORMATION
  Report Type: 
  Country: None (occurrence: None)
  Receive Date: 20060322
  Receipt Date: 20060303
  Transmission Date: 20060701
  Serious: Yes (Other)
  Sender: FDA-Public Use
  Company Number: US200603001337

PATIENT
  Age: 88 Year
  Sex: Female

DRUGS (2)
  1. FORTEO [Suspect]
  2. FORTEO [Concomitant]

REACTIONS (2)
  - FALL [None]
  - PHARMACEUTICAL PRODUCT COMPLAINT [None]
